FAERS Safety Report 4968707-5 (Version None)
Quarter: 2006Q2

REPORT INFORMATION
  Report Type: 
  Country: None (occurrence: None)
  Receive Date: 20060411
  Receipt Date: 20060224
  Transmission Date: 20061013
  Serious: Yes (Other)
  Sender: FDA-Public Use
  Company Number: PHNU2006DE01108

PATIENT
  Age: 53 Year
  Sex: Male
  Weight: 111.2 kg

DRUGS (5)
  1. HUMALOG [Concomitant]
     Indication: DIABETES MELLITUS INSULIN-DEPENDENT
     Dosage: 14 - 16 - 12 - 0 /DAY
     Route: 058
     Dates: start: 19950101
  2. PROTAPHAN [Concomitant]
     Indication: DIABETES MELLITUS INSULIN-DEPENDENT
     Dosage: 0 - 0 - 0 - 12/DAY
     Route: 058
     Dates: start: 19950101
  3. VOLTAREN [Concomitant]
     Indication: ARTHRALGIA
     Dosage: 50 TO 75 MG, PRN
     Route: 048
     Dates: start: 20041103
  4. AREDIA [Suspect]
     Dosage: 90 MG, QMO
     Dates: start: 20000322, end: 20030429
  5. ZOMETA [Suspect]
     Indication: MULTIPLE MYELOMA
     Dosage: 4 MG, QMO
     Dates: start: 20030603, end: 20050627

REACTIONS (3)
  - OSTEONECROSIS [None]
  - SURGERY [None]
  - WOUND DEBRIDEMENT [None]
